FAERS Safety Report 5358599-7 (Version None)
Quarter: 2007Q2

REPORT INFORMATION
  Report Type: 
  Country: None (occurrence: None)
  Receive Date: 20070614
  Receipt Date: 20070614
  Transmission Date: 20071010
  Serious: Yes (Other)
  Sender: FDA-Public Use
  Company Number: None

PATIENT
  Age: 49 Year
  Sex: Female
  Weight: 74.8435 kg

DRUGS (7)
  1. AVASTIN [Suspect]
     Indication: BREAST CANCER METASTATIC
     Dosage: IV   (2ND CYCLE)
     Route: 042
  2. ABRAXANE [Suspect]
     Indication: BREAST CANCER METASTATIC
     Dosage: IV   (2ND CYCLE)
     Route: 042
  3. HYDROMORPHONE HCL [Concomitant]
  4. ATIVAN [Concomitant]
  5. DIFLUCAN [Concomitant]
  6. ROCEPHIN [Concomitant]
  7. FAMVIR [Concomitant]

REACTIONS (8)
  - CELLULITIS [None]
  - FEBRILE NEUTROPENIA [None]
  - LIP ULCERATION [None]
  - LYMPHOEDEMA [None]
  - NEUTROPENIA [None]
  - OEDEMA PERIPHERAL [None]
  - SKIN ULCER [None]
  - TONGUE ULCERATION [None]
